FAERS Safety Report 18449627 (Version 2)
Quarter: 2020Q4

REPORT INFORMATION
  Report Type: Report from Study
  Country: US (occurrence: US)
  Receive Date: 20201102
  Receipt Date: 20201110
  Transmission Date: 20210114
  Serious: Yes (Hospitalization, Other)
  Sender: FDA-Public Use
  Company Number: US-CLOVIS ONCOLOGY-CLO-2020-001438

PATIENT
  Age: 41 Year
  Sex: Female

DRUGS (2)
  1. RUBRACA [Suspect]
     Active Substance: RUCAPARIB CAMSYLATE
     Indication: OVARIAN CANCER
     Dosage: 300 MG, BID
     Route: 048
     Dates: start: 20200722, end: 20200730
  2. RUBRACA [Suspect]
     Active Substance: RUCAPARIB CAMSYLATE
     Dosage: 600 MG, BID
     Route: 048
     Dates: start: 20200722

REACTIONS (18)
  - Pulmonary embolism [Unknown]
  - Vocal cord disorder [Unknown]
  - Aphasia [Unknown]
  - Asthenia [Unknown]
  - Nausea [Unknown]
  - Accidental underdose [Unknown]
  - Hemiplegia [Not Recovered/Not Resolved]
  - Brain oedema [Not Recovered/Not Resolved]
  - Nodule [Unknown]
  - Pain [Unknown]
  - Hypersomnia [Unknown]
  - Tumour marker increased [Not Recovered/Not Resolved]
  - Dizziness [Not Recovered/Not Resolved]
  - Sunburn [Unknown]
  - Brain injury [Not Recovered/Not Resolved]
  - Photosensitivity reaction [Unknown]
  - Cerebrovascular accident [Not Recovered/Not Resolved]
  - Fatigue [Not Recovered/Not Resolved]

NARRATIVE: CASE EVENT DATE: 2020
